FAERS Safety Report 4531567-0 (Version None)
Quarter: 2004Q4

REPORT INFORMATION
  Report Type: 
  Country: None (occurrence: None)
  Receive Date: 20041216
  Receipt Date: 20041201
  Transmission Date: 20050328
  Serious: Yes (Hospitalization, Disabling)
  Sender: FDA-Public Use
  Company Number: 200410804

PATIENT
  Age: 57 Year
  Sex: Female
  Weight: 43.0917 kg

DRUGS (10)
  1. BOTOX [Suspect]
     Indication: MIGRAINE
     Dosage: 100 UNITS PRN; IM
     Route: 030
     Dates: start: 20040922
  2. FIORICET [Concomitant]
  3. TORADOL [Concomitant]
  4. TORADOL [Concomitant]
  5. DEMEROL [Concomitant]
  6. DEPACON [Concomitant]
  7. DEPAKOTE [Concomitant]
  8. PHENOBARBITAL TAB [Concomitant]
  9. ALEVE [Concomitant]
  10. VERAPAMIL [Concomitant]

REACTIONS (8)
  - ANEURYSM [None]
  - BACK PAIN [None]
  - BLOOD AMYLASE INCREASED [None]
  - DRUG INEFFECTIVE [None]
  - HEADACHE [None]
  - MUSCULAR WEAKNESS [None]
  - NECK PAIN [None]
  - NEOPLASM [None]
